FAERS Safety Report 8422576-X (Version None)
Quarter: 2012Q2

REPORT INFORMATION
  Report Type: 
  Country: None (occurrence: None)
  Receive Date: 20120604
  Receipt Date: 20120521
  Transmission Date: 20120825
  Serious: Yes (Hospitalization, Other)
  Sender: FDA-Public Use
  Company Number: 2012P1030598

PATIENT
  Age: 68 Year
  Sex: Female
  Weight: 84 kg

DRUGS (23)
  1. TIAGABINE HCL [Concomitant]
  2. ALENDRONATE SODIUM [Concomitant]
  3. BUPROPION HCL [Suspect]
  4. LISINOPRIL [Concomitant]
  5. CALCIUM TABS [Concomitant]
  6. OXYCODONE HCL [Concomitant]
  7. OMEPRAZOLE [Concomitant]
  8. ATORVASTATIN CALCIUM [Concomitant]
  9. SENNA-MINT WAF [Concomitant]
  10. CLONAZEPAM [Concomitant]
  11. ONDANSETRON [Suspect]
     Indication: MASTECTOMY
  12. MIDAZOLAM [Concomitant]
  13. PROPOFOL [Concomitant]
  14. FENTANYL CITRATE [Suspect]
     Indication: MASTECTOMY
     Dosage: 100 UG;   50 UG;
  15. LEVOTHYROXINE SODIUM [Concomitant]
  16. FLUODRICORTISONE [Concomitant]
  17. TRIAMTERENE AND HYDROCHLOROTHIAZIDE [Concomitant]
  18. SUCCINYLCHOLINE CHLORIDE [Concomitant]
  19. DULOXETINE HYDROCHLORIDE [Suspect]
  20. PAROXETINE HCL [Suspect]
  21. GABAPENTIN [Concomitant]
  22. MULTI-VITAMIN [Concomitant]
  23. HYDROMORPHONE [Concomitant]

REACTIONS (4)
  - SEROTONIN SYNDROME [None]
  - UNRESPONSIVE TO STIMULI [None]
  - APNOEIC ATTACK [None]
  - BLOOD PRESSURE DECREASED [None]
